FAERS Safety Report 13801843 (Version 5)
Quarter: 2019Q4

REPORT INFORMATION
  Report Type: Report from Study
  Country: US (occurrence: US)
  Receive Date: 20170727
  Receipt Date: 20191213
  Transmission Date: 20200122
  Serious: Yes (Other)
  Sender: FDA-Public Use
  Company Number: PHEH2017US019482

PATIENT
  Sex: Female
  Weight: 58.96 kg

DRUGS (2)
  1. COSENTYX [Suspect]
     Active Substance: SECUKINUMAB
     Indication: PSORIASIS
     Dosage: 150 MG, UNK
     Route: 065
     Dates: start: 20160930, end: 20170525
  2. COSENTYX [Suspect]
     Active Substance: SECUKINUMAB
     Dosage: 300 MG, EVERY 4 WEEKS
     Route: 065

REACTIONS (12)
  - Colitis [Unknown]
  - Faeces soft [Unknown]
  - Mucosal ulceration [Unknown]
  - Crohn^s disease [Not Recovered/Not Resolved]
  - Frequent bowel movements [Unknown]
  - Diarrhoea [Unknown]
  - Chronic gastritis [Unknown]
  - Incontinence [Unknown]
  - Malaise [Unknown]
  - Defaecation urgency [Unknown]
  - Oesophagitis [Unknown]
  - Abdominal pain [Unknown]

NARRATIVE: CASE EVENT DATE: 20170515
